FAERS Safety Report 16764744 (Version 2)
Quarter: 2019Q4

REPORT INFORMATION
  Report Type: Report from Study
  Country: None (occurrence: US)
  Receive Date: 20190902
  Receipt Date: 20191219
  Transmission Date: 20200122
  Serious: Yes (Hospitalization, Other)
  Sender: FDA-Public Use
  Company Number: US-ABBVIE-19K-163-2866444-00

PATIENT
  Sex: Male
  Weight: 74.91 kg

DRUGS (13)
  1. LIPITOR [Concomitant]
     Active Substance: ATORVASTATIN CALCIUM
     Indication: HYPERTENSION
  2. PREDNISONE. [Concomitant]
     Active Substance: PREDNISONE
     Indication: RHEUMATOID ARTHRITIS
  3. METHOTREXATE. [Concomitant]
     Active Substance: METHOTREXATE
     Indication: ARTHRITIS
  4. ASPIRIN. [Concomitant]
     Active Substance: ASPIRIN
     Indication: ANTICOAGULANT THERAPY
  5. ADVAIR HFA [Concomitant]
     Active Substance: FLUTICASONE PROPIONATE\SALMETEROL XINAFOATE
     Indication: PRODUCT USED FOR UNKNOWN INDICATION
  6. FOLIC ACID. [Concomitant]
     Active Substance: FOLIC ACID
     Indication: PRODUCT USED FOR UNKNOWN INDICATION
  7. CARVEDILOL. [Concomitant]
     Active Substance: CARVEDILOL
     Indication: PRODUCT USED FOR UNKNOWN INDICATION
  8. ENALAPRIL [Concomitant]
     Active Substance: ENALAPRIL
     Indication: PRODUCT USED FOR UNKNOWN INDICATION
  9. SINGULAIR [Concomitant]
     Active Substance: MONTELUKAST SODIUM
     Indication: ASTHMA
  10. TRAMADOL. [Concomitant]
     Active Substance: TRAMADOL
     Indication: ARTHRALGIA
  11. HUMIRA [Suspect]
     Active Substance: ADALIMUMAB
     Indication: RHEUMATOID ARTHRITIS
     Route: 058
     Dates: start: 2003
  12. VOLTAREN [Concomitant]
     Active Substance: DICLOFENAC SODIUM
     Indication: ARTHRITIS
  13. FLECTOR [Concomitant]
     Active Substance: DICLOFENAC EPOLAMINE
     Indication: ARTHRITIS

REACTIONS (5)
  - Skin cancer [Recovering/Resolving]
  - Hypertension [Recovering/Resolving]
  - Cardiac disorder [Recovering/Resolving]
  - Extrasystoles [Unknown]
  - Rheumatoid arthritis [Not Recovered/Not Resolved]

NARRATIVE: CASE EVENT DATE: 2003
